FAERS Safety Report 7833550-6 (Version None)
Quarter: 2011Q4

REPORT INFORMATION
  Report Type: 
  Country: None (occurrence: None)
  Receive Date: 20111020
  Receipt Date: 20111010
  Transmission Date: 20120403
  Serious: Yes (Hospitalization, Other)
  Sender: FDA-Public Use
  Company Number: 2011P1009415

PATIENT
  Age: 20 Year
  Sex: Female

DRUGS (5)
  1. FENTANYL [Suspect]
     Indication: TOOTH EXTRACTION
     Dosage: 100 MCG; X1; IV
     Route: 042
  2. GLYCOPYRROLATE [Concomitant]
  3. MIDAZOLAM [Suspect]
     Indication: TOOTH EXTRACTION
     Dosage: 7 MG; X1; IV
     Route: 042
  4. PROPOFOL [Suspect]
     Indication: TOOTH EXTRACTION
     Dosage: 110 MG; X1; IV
     Route: 042
  5. KETAMINE HCL [Suspect]
     Indication: TOOTH EXTRACTION
     Dosage: 100 MG; X1; IV
     Route: 042

REACTIONS (1)
  - ANAESTHETIC COMPLICATION NEUROLOGICAL [None]
